FAERS Safety Report 4478881-5 (Version None)
Quarter: 2004Q4

REPORT INFORMATION
  Report Type: 
  Country: None (occurrence: None)
  Receive Date: 20041014
  Receipt Date: 20041001
  Transmission Date: 20050328
  Serious: Yes (Hospitalization)
  Sender: FDA-Public Use
  Company Number: 2004075359

PATIENT
  Sex: Female

DRUGS (3)
  1. NEURONTIN [Suspect]
     Indication: EPILEPSY
     Dosage: 1200 MG (400 MG, 3 IN 1 D)
  2. PAROXETINE HCL [Suspect]
     Indication: ILL-DEFINED DISORDER
  3. TEMOZOLOMIDE (TEMOZOLOMIDE) [Concomitant]

REACTIONS (1)
  - HEPATOTOXICITY [None]
